FAERS Safety Report 9471556 (Version 1)
Quarter: 2013Q3

REPORT INFORMATION
  Report Type: Spontaneous
  Country: BR (occurrence: BR)
  Receive Date: 20130822
  Receipt Date: 20130822
  Transmission Date: 20140515
  Serious: Yes (Other)
  Sender: FDA-Public Use
  Company Number: PHHY2013BR088408

PATIENT
  Age: 54 Year
  Sex: Female

DRUGS (5)
  1. DOXORUBICIN [Suspect]
     Indication: CHEMOTHERAPY
     Dosage: 60 MG/M2, UNK
  2. PACLITAXEL [Suspect]
     Indication: CHEMOTHERAPY
     Dosage: 175 MG/M2 EVERY THREE WEEKS
  3. CYCLOPHOSPHAMIDE [Suspect]
     Indication: CHEMOTHERAPY
     Dosage: 600 MG/M2, UNK
  4. TRASTUZUMAB [Suspect]
     Indication: CHEMOTHERAPY
     Dosage: 8 MG/KG, UNK
  5. TRASTUZUMAB [Suspect]
     Dosage: 6 MG/KG, (8 MG/KG AND 6MG/KG EVERY THREE WEEKS)

REACTIONS (6)
  - Cardiotoxicity [Recovered/Resolved]
  - Fatigue [Recovered/Resolved]
  - Dyspnoea exertional [Recovered/Resolved]
  - Asthenia [Recovered/Resolved]
  - Tachycardia [Recovered/Resolved]
  - Ejection fraction decreased [Recovered/Resolved]
